FAERS Safety Report 9645997 (Version 1)
Quarter: 2013Q4

REPORT INFORMATION
  Report Type: Report from Study
  Country: ES (occurrence: ES)
  Receive Date: 20131025
  Receipt Date: 20131025
  Transmission Date: 20140711
  Serious: Yes (Other)
  Sender: FDA-Public Use
  Company Number: ES-GLAXOSMITHKLINE-B0935262A

PATIENT
  Age: 50 Year
  Sex: Female

DRUGS (4)
  1. DABRAFENIB [Suspect]
     Indication: METASTATIC MALIGNANT MELANOMA
     Dosage: 150MG TWICE PER DAY
     Route: 048
     Dates: start: 20131014
  2. TRAMETINIB [Suspect]
     Indication: METASTATIC MALIGNANT MELANOMA
     Dosage: 2MG PER DAY
     Route: 048
     Dates: start: 20131014
  3. OMEPRAZOLE [Concomitant]
     Indication: DYSPEPSIA
     Dosage: 20MG PER DAY
     Route: 048
  4. LEVOTHYROXINE [Concomitant]
     Indication: AUTOIMMUNE THYROIDITIS

REACTIONS (2)
  - Pyrexia [Not Recovered/Not Resolved]
  - Panniculitis [Not Recovered/Not Resolved]
